FAERS Safety Report 10385321 (Version 4)
Quarter: 2015Q1

REPORT INFORMATION
  Report Type: Spontaneous
  Country: GR (occurrence: GR)
  Receive Date: 20140814
  Receipt Date: 20150108
  Transmission Date: 20150720
  Serious: Yes (Death, Other)
  Sender: FDA-Public Use
  Company Number: GR-TEVA-501207ISR

PATIENT
  Age: 34 Year
  Sex: Female
  Weight: 53 kg

DRUGS (13)
  1. ETOPOSIDE 100 MG/5ML [Suspect]
     Active Substance: ETOPOSIDE
     Indication: HODGKIN^S DISEASE
     Dosage: 300 MG DAYS 1-3 INTRAVENOUSLY
     Route: 042
     Dates: start: 20140702
  2. TEVAGRASTIM [Suspect]
     Active Substance: FILGRASTIM
     Indication: WHITE BLOOD CELL COUNT DECREASED
     Dosage: ADMINISTERED ON 10/7 AND 12/7/2014, ACCORDING TO THE MOTHER
     Dates: start: 20140710, end: 20140712
  3. ONDANSETRON [Suspect]
     Active Substance: ONDANSETRON
     Indication: PROPHYLAXIS OF NAUSEA AND VOMITING
  4. ADRIBLASTINA [Suspect]
     Active Substance: DOXORUBICIN HYDROCHLORIDE
     Indication: HODGKIN^S DISEASE
     Dosage: 55 MILLIGRAM DAILY; 55 MG DAY 1 INTRAVENOUSLY
     Route: 042
     Dates: start: 20140702
  5. ZYLORIC [Concomitant]
     Active Substance: ALLOPURINOL
     Dosage: 100 MILLIGRAM DAILY; CONTINUOSLY
     Dates: start: 20140702
  6. NATULAN [Suspect]
     Active Substance: PROCARBAZINE HYDROCHLORIDE
     Indication: HODGKIN^S DISEASE
     Dosage: 50MG 3 TIMES A DAY, FOR DAYS 1 TO 7
     Dates: start: 20140702
  7. PREDNISOLON [Suspect]
     Active Substance: PREDNISOLONE
     Dosage: 20 MG 3 TIMES A DAY FOR DAYS 1-14
  8. ZANTAC [Concomitant]
     Active Substance: RANITIDINE HYDROCHLORIDE
     Dosage: FOR THE DAYS CORTISON IS ADMINISTRATED
     Dates: start: 20140702
  9. ENDOXAN 1000MG/VIAL PD.INJ.SOL [Suspect]
     Active Substance: CYCLOPHOSPHAMIDE
     Indication: HODGKIN^S DISEASE
     Dosage: 1950 MILLIGRAM DAILY; 1950 MG DAY 1 INTRAVENOUSLY
     Route: 042
     Dates: start: 20140702
  10. ZOFRON [Suspect]
     Active Substance: ONDANSETRON
     Indication: PROPHYLAXIS OF NAUSEA AND VOMITING
     Dosage: 8 MG WHEN HAVING NAUSEA AND UP TO 2 TABLETS A DAY
  11. MESNA. [Suspect]
     Active Substance: MESNA
     Dosage: 800 MG BEFORE ENDOXAN AND 800 MG 4 HOURS LATER
     Dates: start: 20140702
  12. EMEND [Suspect]
     Active Substance: APREPITANT
     Indication: PROPHYLAXIS OF NAUSEA AND VOMITING
     Dosage: 125-80-80 THE 3 FIRST DAY OF EACH CYCLE
     Dates: start: 20140702
  13. PREZOLON [Suspect]
     Active Substance: PREDNISOLONE
     Indication: HODGKIN^S DISEASE
     Dosage: 60 MILLIGRAM DAILY; 20 MG 3 TIMES A DAY FOR DAYS 1-4

REACTIONS (7)
  - Neutropenia [Unknown]
  - Myocardial ischaemia [Fatal]
  - Pyrexia [Unknown]
  - Tachycardia [Unknown]
  - Aspiration [Fatal]
  - Vomiting [Unknown]
  - Diarrhoea [Unknown]

NARRATIVE: CASE EVENT DATE: 20140709
